FAERS Safety Report 13629564 (Version 1)
Quarter: 2017Q2

REPORT INFORMATION
  Report Type: Spontaneous
  Country: US (occurrence: US)
  Receive Date: 20170531
  Receipt Date: 20170531
  Transmission Date: 20170830
  Serious: No
  Sender: FDA-Public Use
  Company Number: US-ASTELLAS-1216274

PATIENT
  Sex: Female

DRUGS (2)
  1. TARCEVA [Suspect]
     Active Substance: ERLOTINIB HYDROCHLORIDE
     Indication: BRONCHIOLOALVEOLAR CARCINOMA
     Route: 065
  2. ALIMTA [Suspect]
     Active Substance: PEMETREXED DISODIUM
     Indication: BRONCHIOLOALVEOLAR CARCINOMA
     Route: 065

REACTIONS (12)
  - Diarrhoea [Unknown]
  - Emphysema [Unknown]
  - Joint stiffness [Not Recovered/Not Resolved]
  - Butterfly rash [Unknown]
  - Asthma [Unknown]
  - Neuropathy peripheral [Unknown]
  - Eczema [Unknown]
  - Pain [Not Recovered/Not Resolved]
  - Oedema [Not Recovered/Not Resolved]
  - Autoimmune disorder [Unknown]
  - Diverticulitis [Unknown]
  - Blood creatinine increased [Unknown]
